FAERS Safety Report 5169513-1 (Version None)
Quarter: 2006Q4

REPORT INFORMATION
  Report Type: 
  Country: None (occurrence: None)
  Receive Date: 20061211
  Receipt Date: 20061201
  Transmission Date: 20070319
  Serious: Yes (Death)
  Sender: FDA-Public Use
  Company Number: US-JNJFOC-20061202276

PATIENT
  Age: 73 Year
  Sex: Female

DRUGS (3)
  1. REOPRO [Suspect]
     Dosage: 0.125 MCG/KG/MIN OVER 12 HOURS
  2. REOPRO [Suspect]
     Indication: CEREBRAL ARTERY OCCLUSION
  3. HEPARIN [Concomitant]
     Indication: CEREBRAL ARTERY OCCLUSION

REACTIONS (1)
  - DEATH [None]
